FAERS Safety Report 4943840-2 (Version None)
Quarter: 2006Q1

REPORT INFORMATION
  Report Type: 
  Country: None (occurrence: None)
  Receive Date: 20060310
  Receipt Date: 20060224
  Transmission Date: 20060701
  Serious: Yes (Death)
  Sender: FDA-Public Use
  Company Number: S06-FRA-00997-01

PATIENT
  Age: 51 Year
  Sex: Male

DRUGS (7)
  1. ESCITALOPRAM OXALATE [Suspect]
     Indication: MAJOR DEPRESSION
     Dosage: 20 MG QD PO
     Route: 048
     Dates: start: 20060201, end: 20060221
  2. CITALOPRAM HYDROBROMIDE [Suspect]
     Indication: MAJOR DEPRESSION
     Dosage: 40 MG QD IV
     Route: 042
     Dates: start: 20060201, end: 20060201
  3. BUSPAR [Concomitant]
  4. ATARAX [Concomitant]
  5. ANAFRANIL [Concomitant]
  6. ABILIFY [Concomitant]
  7. OXAZEPAM [Concomitant]

REACTIONS (3)
  - ANXIETY [None]
  - COMPLETED SUICIDE [None]
  - GUN SHOT WOUND [None]
